FAERS Safety Report 5053716-0 (Version None)
Quarter: 2006Q3

REPORT INFORMATION
  Report Type: 
  Country: None (occurrence: None)
  Receive Date: 20060718
  Receipt Date: 20060426
  Transmission Date: 20061208
  Serious: Yes (Other)
  Sender: FDA-Public Use
  Company Number: CA-ROCHE-446082

PATIENT
  Age: 71 Year
  Sex: Female
  Weight: 84.8 kg

DRUGS (3)
  1. XENICAL [Suspect]
     Indication: OBESITY
     Route: 048
     Dates: start: 20051026, end: 20060415
  2. XENICAL [Suspect]
     Route: 048
     Dates: start: 20060417
  3. XENICAL [Suspect]
     Route: 048
     Dates: start: 20060702

REACTIONS (1)
  - COLONIC POLYP [None]
